FAERS Safety Report 8320808-X (Version None)
Quarter: 2012Q2

REPORT INFORMATION
  Report Type: 
  Country: None (occurrence: None)
  Receive Date: 20120430
  Receipt Date: 20120417
  Transmission Date: 20120825
  Serious: Yes (Other)
  Sender: FDA-Public Use
  Company Number: PHHY2012CN035669

PATIENT
  Age: 36 Year
  Sex: Male

DRUGS (6)
  1. IDARUBICIN HCL [Concomitant]
     Dosage: 200 MG, QD, ON DAYS 1-3
     Dates: start: 20100101
  2. HOMOHARRINGTONINE [Suspect]
     Dosage: 2 MG, BID
  3. GLEEVEC [Suspect]
     Indication: CHRONIC MYELOID LEUKAEMIA
     Dosage: 300-600 MG  PER DAY
     Dates: start: 20060101
  4. GLEEVEC [Suspect]
     Dosage: 400 MG, PER DAY
     Dates: start: 20100801
  5. GLEEVEC [Suspect]
     Dosage: 400-600 MG PER DAY
     Dates: end: 20100401
  6. CYTARABINE [Concomitant]
     Dosage: 200 MG, Q12H, ON DAYS 1-7
     Dates: start: 20100101

REACTIONS (6)
  - HEPATIC FAILURE [None]
  - BONE MARROW FAILURE [None]
  - TREATMENT FAILURE [None]
  - BLAST CRISIS IN MYELOGENOUS LEUKAEMIA [None]
  - DIARRHOEA [None]
  - INFECTION [None]
